FAERS Safety Report 21652145 (Version 2)
Quarter: 2022Q4

REPORT INFORMATION
  Report Type: Spontaneous
  Country: BR (occurrence: BR)
  Receive Date: 20221128
  Receipt Date: 20221230
  Transmission Date: 20230112
  Serious: Yes (Other)
  Sender: FDA-Public Use
  Company Number: BR-JNJFOC-20221142227

PATIENT
  Age: 24 Year
  Sex: Male

DRUGS (10)
  1. SPRAVATO [Suspect]
     Active Substance: ESKETAMINE
     Indication: Depression
     Dosage: FIRST WEEK APPLICATION,
     Dates: start: 20220606
  2. SPRAVATO [Suspect]
     Active Substance: ESKETAMINE
     Indication: Suicidal ideation
     Dosage: FOURTH WEEK
     Dates: start: 2022
  3. SPRAVATO [Suspect]
     Active Substance: ESKETAMINE
     Dosage: EIGHTH WEEK
     Dates: start: 2022
  4. SPRAVATO [Suspect]
     Active Substance: ESKETAMINE
     Dosage: FIFTEENTH WEEK
     Dates: start: 2022
  5. SPRAVATO [Suspect]
     Active Substance: ESKETAMINE
     Dosage: NINTEENTH WEEK
     Dates: start: 2022
  6. VENLAFAXINE [Concomitant]
     Active Substance: VENLAFAXINE HYDROCHLORIDE
     Route: 065
  7. LITHIUM CARBONATE [Concomitant]
     Active Substance: LITHIUM CARBONATE
     Route: 065
  8. LITHIUM CARBONATE [Concomitant]
     Active Substance: LITHIUM CARBONATE
     Dosage: 0-0-2
     Route: 065
  9. QUETIAPINE [Concomitant]
     Active Substance: QUETIAPINE
     Route: 065
  10. CLOMIPRAMINE [Concomitant]
     Active Substance: CLOMIPRAMINE
     Route: 065

REACTIONS (13)
  - Suicidal ideation [Recovered/Resolved]
  - Anhedonia [Recovering/Resolving]
  - Abulia [Unknown]
  - Attention deficit hyperactivity disorder [Unknown]
  - Musculoskeletal disorder [Unknown]
  - General physical health deterioration [Unknown]
  - Insomnia [Recovering/Resolving]
  - Anxiety [Recovering/Resolving]
  - Vision blurred [Unknown]
  - Dysgeusia [Unknown]
  - Nausea [Unknown]
  - Dizziness [Unknown]
  - Off label use [Unknown]

NARRATIVE: CASE EVENT DATE: 20220101
